FAERS Safety Report 5047673-0 (Version None)
Quarter: 2006Q3

REPORT INFORMATION
  Report Type: 
  Country: None (occurrence: None)
  Receive Date: 20060706
  Receipt Date: 20060706
  Transmission Date: 20061208
  Serious: Yes (Death)
  Sender: FDA-Public Use
  Company Number: None

PATIENT
  Age: 87 Year
  Sex: Male
  Weight: 87.6 kg

DRUGS (3)
  1. VANCOMYCIN [Suspect]
     Indication: OSTEOMYELITIS
     Dosage: 1250 MG Q48H IV
     Route: 042
     Dates: start: 20060512, end: 20060525
  2. PIPERACILLIN AND TAZOBACTAM [Suspect]
     Indication: OSTEOMYELITIS
     Dosage: 2.25 MG Q6H IV
     Route: 042
     Dates: start: 20060510, end: 20060515
  3. PIPERACILLIN AND TAZOBACTAM [Suspect]
     Indication: OSTEOMYELITIS
     Dosage: 2.25 MG Q6H IV
     Route: 042
     Dates: start: 20060518, end: 20060525

REACTIONS (15)
  - ASTHENIA [None]
  - BLOOD THYROID STIMULATING HORMONE INCREASED [None]
  - CELLULITIS [None]
  - DECREASED APPETITE [None]
  - DEPRESSION [None]
  - ERYTHEMA [None]
  - EXCORIATION [None]
  - GLYCOSYLATED HAEMOGLOBIN INCREASED [None]
  - OSTEOMYELITIS [None]
  - PYREXIA [None]
  - RENAL FAILURE [None]
  - STAPHYLOCOCCAL INFECTION [None]
  - SUICIDAL IDEATION [None]
  - SWELLING [None]
  - WHITE BLOOD CELL COUNT INCREASED [None]
